FAERS Safety Report 5676167-4 (Version None)
Quarter: 2008Q1

REPORT INFORMATION
  Report Type: 
  Country: None (occurrence: None)
  Receive Date: 20080321
  Receipt Date: 20080314
  Transmission Date: 20080703
  Serious: No
  Sender: FDA-Public Use
  Company Number: US-BAXTER-2008BH002254

PATIENT
  Sex: Female

DRUGS (2)
  1. HEPARIN SODIUM [Suspect]
     Indication: COAGULOPATHY
     Route: 065
     Dates: start: 20070901
  2. HEPARIN SODIUM [Suspect]
     Route: 065
     Dates: start: 20070901

REACTIONS (3)
  - FIBROMYALGIA [None]
  - MYALGIA [None]
  - NAUSEA [None]
